FAERS Safety Report 4644544-6 (Version None)
Quarter: 2005Q2

REPORT INFORMATION
  Report Type: 
  Country: None (occurrence: None)
  Receive Date: 20050331
  Receipt Date: 20041201
  Transmission Date: 20051028
  Serious: No
  Sender: FDA-Public Use
  Company Number: 04P-163-0281859-00

PATIENT
  Sex: Female

DRUGS (2)
  1. HUMIRA [Suspect]
     Dosage: SEE IMAGE
     Route: 058
     Dates: end: 20041101
  2. HUMIRA [Suspect]
     Dosage: SEE IMAGE
     Route: 058
     Dates: start: 20041101

REACTIONS (1)
  - CHEST DISCOMFORT [None]
